FAERS Safety Report 17346439 (Version 1)
Quarter: 2020Q1

REPORT INFORMATION
  Report Type: Report from Study
  Country: US (occurrence: US)
  Receive Date: 20200129
  Receipt Date: 20200129
  Transmission Date: 20200409
  Serious: No
  Sender: FDA-Public Use
  Company Number: US-EXELIXIS-CABO-19022755

PATIENT
  Sex: Female

DRUGS (5)
  1. CABOMETYX [Suspect]
     Active Substance: CABOZANTINIB S-MALATE
     Indication: HEPATIC CANCER
     Dosage: 60 MG, QD
     Dates: start: 20190625
  2. CABOMETYX [Suspect]
     Active Substance: CABOZANTINIB S-MALATE
     Dosage: 20 MG, QD
     Dates: start: 20190820
  3. ESTROVEN [Concomitant]
     Active Substance: DIETARY SUPPLEMENT
  4. CABOMETYX [Suspect]
     Active Substance: CABOZANTINIB S-MALATE
     Dosage: 60 MG, QOD
  5. CABOMETYX [Suspect]
     Active Substance: CABOZANTINIB S-MALATE
     Dosage: 40 MG, QD
     Dates: start: 20190722

REACTIONS (9)
  - Pain in extremity [Recovering/Resolving]
  - Sinus congestion [Recovered/Resolved]
  - Hyperkeratosis [Recovering/Resolving]
  - Tinnitus [Not Recovered/Not Resolved]
  - Hepatic enzyme increased [Recovering/Resolving]
  - Impaired healing [Recovered/Resolved]
  - Taste disorder [Recovering/Resolving]
  - Fatigue [Recovering/Resolving]
  - Sluggishness [Recovering/Resolving]
